FAERS Safety Report 5685342-4 (Version None)
Quarter: 2008Q1

REPORT INFORMATION
  Report Type: 
  Country: None (occurrence: None)
  Receive Date: 20080328
  Receipt Date: 20080316
  Transmission Date: 20080703
  Serious: Yes (Disabling, Other)
  Sender: FDA-Public Use
  Company Number: US-PFIZER INC-2008025151

PATIENT
  Sex: Female
  Weight: 63.181 kg

DRUGS (4)
  1. LYRICA [Suspect]
     Indication: INTERVERTEBRAL DISC DEGENERATION
  2. COMBIVENT [Concomitant]
  3. AVAPRO [Concomitant]
  4. OMEPRAZOLE [Concomitant]

REACTIONS (5)
  - GAIT DISTURBANCE [None]
  - HIP SURGERY [None]
  - INCORRECT DOSE ADMINISTERED [None]
  - MEDICATION ERROR [None]
  - POST PROCEDURAL COMPLICATION [None]
